FAERS Safety Report 19035661 (Version 2)
Quarter: 2021Q1

REPORT INFORMATION
  Report Type: Spontaneous
  Country: MX (occurrence: MX)
  Receive Date: 20210320
  Receipt Date: 20210327
  Transmission Date: 20210420
  Serious: Yes (Other)
  Sender: FDA-Public Use
  Company Number: MX-UCBSA-2021010832

PATIENT
  Age: 5 Month
  Sex: Male
  Weight: 5.5 kg

DRUGS (4)
  1. VIMPAT [Suspect]
     Active Substance: LACOSAMIDE
     Indication: INFANTILE SPASMS
     Dosage: 2 MILLILITER, 2X/DAY (BID)
     Dates: start: 20210302
  2. UNAMOL [Concomitant]
     Indication: PRODUCT USED FOR UNKNOWN INDICATION
  3. NEXIUM I.V. [Concomitant]
     Active Substance: ESOMEPRAZOLE SODIUM
     Indication: PRODUCT USED FOR UNKNOWN INDICATION
  4. MAXIM [CEFUROXIME] [Concomitant]
     Indication: GASTRIC DISORDER
     Dosage: 10 MILLIGRAM, 2X/DAY (BID)

REACTIONS (2)
  - Gastrooesophageal reflux disease [Not Recovered/Not Resolved]
  - Off label use [Unknown]

NARRATIVE: CASE EVENT DATE: 20210302
